FAERS Safety Report 12526743 (Version 1)
Quarter: 2016Q3

REPORT INFORMATION
  Report Type: Spontaneous
  Country: US (occurrence: US)
  Receive Date: 20160705
  Receipt Date: 20160705
  Transmission Date: 20161109
  Serious: Yes (Hospitalization, Other)
  Sender: FDA-Public Use
  Company Number: US-ACTAVIS-2016-14118

PATIENT
  Age: 48 Year
  Sex: Male

DRUGS (1)
  1. BACLOFEN (WATSON LABORATORIES) [Suspect]
     Active Substance: BACLOFEN
     Indication: ALCOHOL WITHDRAWAL SYNDROME
     Dosage: 10 MG, TID
     Route: 048

REACTIONS (4)
  - Condition aggravated [Recovered/Resolved]
  - Hepatic encephalopathy [Recovered/Resolved]
  - Apnoea [Recovered/Resolved]
  - Incorrect dose administered [Recovered/Resolved]
